FAERS Safety Report 7949369 (Version 2)
Quarter: 2012Q4

REPORT INFORMATION
  Report Type: 
  Country: US (occurrence: US)
  Receive Date: 20110517
  Receipt Date: 20121204
  Transmission Date: 20130627
  Serious: No
  Sender: FDA-Public Use
  Company Number: US-AMGEN-KDL412540

PATIENT
  Age: 60 Year
  Sex: Female

DRUGS (6)
  1. ENBREL [Suspect]
     Indication: RHEUMATOID ARTHRITIS
     Dosage: 50 mg, qwk
     Dates: start: 1999
  2. METHOTREXATE [Concomitant]
     Dosage: UNK
  3. METHOTREXATE [Concomitant]
     Dosage: 21.5 mg, qwk
  4. SWINE FLU VACCINE, MONOVALENT [Concomitant]
     Dosage: UNK
  5. PNEUMOCOCCAL VACCINE [Concomitant]
     Dosage: UNK
  6. HUMIRA [Concomitant]
     Dosage: UNK

REACTIONS (10)
  - Rheumatoid arthritis [Recovered/Resolved]
  - Malaise [Unknown]
  - Laceration [Unknown]
  - Weight decreased [Unknown]
  - Muscle spasms [Unknown]
  - Joint effusion [Recovered/Resolved]
  - Abasia [Unknown]
  - Injection site pain [Recovered/Resolved]
  - Nasopharyngitis [Unknown]
  - Bronchitis [Recovered/Resolved]
